FAERS Safety Report 25592185 (Version 1)
Quarter: 2025Q3

REPORT INFORMATION
  Report Type: Report from Study
  Country: EU (occurrence: EU)
  Receive Date: 20250722
  Receipt Date: 20250722
  Transmission Date: 20251020
  Serious: Yes (Hospitalization, Other)
  Sender: TAKEDA
  Company Number: EU-TAKEDA-2025TUS064898

PATIENT
  Age: 68 Year
  Sex: Female

DRUGS (8)
  1. HUMAN IMMUNOGLOBULIN G\HYALURONIDASE RECOMBINANT HUMAN [Suspect]
     Active Substance: HUMAN IMMUNOGLOBULIN G\HYALURONIDASE (HUMAN RECOMBINANT)
     Indication: Immunosuppression
  2. HUMAN IMMUNOGLOBULIN G\HYALURONIDASE RECOMBINANT HUMAN [Suspect]
     Active Substance: HUMAN IMMUNOGLOBULIN G\HYALURONIDASE (HUMAN RECOMBINANT)
     Indication: Plasma cell myeloma
  3. VALTREX [Concomitant]
     Active Substance: VALACYCLOVIR HYDROCHLORIDE
  4. BACTRIM [Concomitant]
     Active Substance: SULFAMETHOXAZOLE\TRIMETHOPRIM
  5. KEPPRA [Concomitant]
     Active Substance: LEVETIRACETAM
     Indication: Blood pressure abnormal
  6. FENTANYL [Concomitant]
     Active Substance: FENTANYL
     Dosage: UNK, Q72H
  7. LYRICA [Concomitant]
     Active Substance: PREGABALIN
  8. TECLISTAMAB [Concomitant]
     Active Substance: TECLISTAMAB
     Indication: Plasma cell myeloma

REACTIONS (2)
  - Neurological symptom [Recovered/Resolved]
  - Brain neoplasm [Recovered/Resolved]
